FAERS Safety Report 10059626 (Version 1)
Quarter: 2014Q2

REPORT INFORMATION
  Report Type: Spontaneous
  Country: CA (occurrence: CA)
  Receive Date: 20140404
  Receipt Date: 20140404
  Transmission Date: 20141212
  Serious: Yes (Other)
  Sender: FDA-Public Use
  Company Number: CA-JNJFOC-20140401628

PATIENT
  Sex: Female

DRUGS (3)
  1. SIMEPREVIR [Suspect]
     Indication: HEPATITIS C
     Route: 065
  2. SOFOSBUVIR [Suspect]
     Indication: HEPATITIS C
     Route: 065
  3. ELTROMBOPAG [Interacting]
     Indication: PLATELET COUNT DECREASED
     Route: 065

REACTIONS (5)
  - Peripheral swelling [Unknown]
  - Drug interaction [Unknown]
  - Erythema [Unknown]
  - Erythema [Unknown]
  - Off label use [Unknown]
